FAERS Safety Report 5598893-8 (Version None)
Quarter: 2008Q1

REPORT INFORMATION
  Report Type: 
  Country: None (occurrence: None)
  Receive Date: 20080122
  Receipt Date: 20080117
  Transmission Date: 20080703
  Serious: Yes (Other)
  Sender: FDA-Public Use
  Company Number: GB-RANBAXY-2006RR-03946

PATIENT

DRUGS (4)
  1. LAMOTRIGINE [Suspect]
     Indication: SIMPLE PARTIAL SEIZURES
     Dosage: 25 MG, BID
     Route: 048
     Dates: start: 20060511
  2. LAMOTRIGINE [Suspect]
     Dosage: 50 MG, BID
     Route: 048
     Dates: start: 20060621, end: 20060629
  3. AMOXICILLIN [Suspect]
     Dosage: UNK
     Route: 065
     Dates: start: 20061201
  4. EPILIM [Concomitant]
     Indication: SIMPLE PARTIAL SEIZURES
     Dosage: 200 MG, BID
     Route: 048
     Dates: start: 20040811

REACTIONS (2)
  - ADVERSE DRUG REACTION [None]
  - HEPATIC ENZYME INCREASED [None]
